FAERS Safety Report 10243718 (Version 1)
Quarter: 2014Q1

REPORT INFORMATION
  Report Type: Spontaneous
  Country: US (occurrence: None)
  Receive Date: 20140306
  Receipt Date: 20140306
  Transmission Date: 20141002
  Serious: Yes (Hospitalization)
  Sender: FDA-Public Use
  Company Number: 163-21880-13114334

PATIENT
  Age: 65 Year
  Sex: Male
  Weight: 95.3 kg

DRUGS (10)
  1. REVLIMID (LENALIDOMIDE) (25 MILLIGRAM, CAPSULES) [Suspect]
     Indication: PLASMA CELL MYELOMA
     Dosage: 25MG, 1 IN 1D, PO
     Route: 048
     Dates: start: 201107
  2. DEXAMETHASONE (DEXAMETHASONE) [Concomitant]
  3. CENTRUM SILVER (CENTRUM SILVER) [Concomitant]
  4. PRAVASTATIN SODIUM (PRAVASTATIN SODIUM) [Concomitant]
  5. RAMIPRIL (RAMIPRIL) [Concomitant]
  6. COUMADIN (WARFARIN SODIUM) [Concomitant]
  7. ALTACE (RAMIPRIL) [Concomitant]
  8. METOPROLOL SUCCINATE (METOPROLOL SUCCINATE) [Concomitant]
  9. ANTIBIOTICS (ANTIBIOTICS) [Concomitant]
  10. PLASMA (PLASMA) [Concomitant]

REACTIONS (1)
  - Cholecystitis infective [None]
